FAERS Safety Report 5306798-2 (Version None)
Quarter: 2007Q2

REPORT INFORMATION
  Report Type: 
  Country: None (occurrence: None)
  Receive Date: 20070423
  Receipt Date: 20070423
  Transmission Date: 20071010
  Serious: Yes (Life-Threatening)
  Sender: FDA-Public Use
  Company Number: None

PATIENT
  Sex: Male
  Weight: 70.7611 kg

DRUGS (1)
  1. TOPAMAX [Suspect]
     Indication: PAIN
     Dosage: 25 MG 1 DAYLY PO
     Route: 048
     Dates: start: 20070416, end: 20070418

REACTIONS (5)
  - BACK PAIN [None]
  - BELLIGERENCE [None]
  - FEELING OF DESPAIR [None]
  - HOSTILITY [None]
  - SUICIDAL IDEATION [None]
